FAERS Safety Report 7705913-0 (Version None)
Quarter: 2011Q3

REPORT INFORMATION
  Report Type: 
  Country: None (occurrence: None)
  Receive Date: 20110818
  Receipt Date: 20110804
  Transmission Date: 20111222
  Serious: Yes (Other)
  Sender: FDA-Public Use
  Company Number: 2009EN000029

PATIENT
  Sex: Male

DRUGS (1)
  1. ADAGEN [Suspect]
     Indication: COMBINED IMMUNODEFICIENCY
     Dosage: QW; IM
     Route: 030
     Dates: start: 20051109, end: 20060911

REACTIONS (2)
  - THERAPEUTIC RESPONSE DECREASED [None]
  - GASTROENTERITIS [None]
